FAERS Safety Report 8602327 (Version 3)
Quarter: 2013Q1

REPORT INFORMATION
  Report Type: Report from Study
  Country: JP (occurrence: JP)
  Receive Date: 20120607
  Receipt Date: 20130314
  Transmission Date: 20140127
  Serious: Yes (Hospitalization)
  Sender: FDA-Public Use
  Company Number: JP-VERTEX PHARMACEUTICALS INC.-AE-2012-008087

PATIENT
  Age: 60 Year
  Sex: Female

DRUGS (8)
  1. VX-950 (TELAPREVIR) [Suspect]
     Indication: CHRONIC HEPATITIS C
     Dosage: 2250 MG, QD
     Route: 048
     Dates: start: 20120524, end: 20120528
  2. RIBAVIRIN [Suspect]
     Indication: CHRONIC HEPATITIS C
     Dosage: 600 MG, QD
     Route: 048
     Dates: start: 20120524, end: 20120528
  3. PEGINTERFERON ALFA-2B [Suspect]
     Indication: CHRONIC HEPATITIS C
     Dosage: 1.5 ?G/KG, QW
     Route: 058
     Dates: start: 20120524, end: 20120524
  4. LOXONIN [Concomitant]
     Dosage: 60 MG, PRN
     Route: 048
  5. ACINON [Concomitant]
     Dosage: 300 MG, QD
     Route: 048
     Dates: end: 20120607
  6. PROMAC                             /01312301/ [Concomitant]
     Dosage: 1 G, QD
     Route: 048
     Dates: end: 20120530
  7. HIRUDOID                           /00723701/ [Concomitant]
     Dosage: UNK UNK, PRN
     Route: 061
  8. NIZORAL [Concomitant]
     Dosage: UNK, QD
     Route: 061

REACTIONS (3)
  - Renal impairment [Recovered/Resolved]
  - Hyperuricaemia [Recovered/Resolved]
  - Nausea [Recovered/Resolved]
